FAERS Safety Report 7081247-5 (Version None)
Quarter: 2010Q4

REPORT INFORMATION
  Report Type: 
  Country: None (occurrence: None)
  Receive Date: 20101103
  Receipt Date: 20101026
  Transmission Date: 20110411
  Serious: Yes (Death, Hospitalization)
  Sender: FDA-Public Use
  Company Number: US-CELGENEUS-163-21880-10041526

PATIENT
  Sex: Male

DRUGS (8)
  1. REVLIMID [Suspect]
     Indication: MULTIPLE MYELOMA
     Route: 048
     Dates: start: 20100319, end: 20100404
  2. REVLIMID [Suspect]
     Route: 048
     Dates: start: 20100429, end: 20100430
  3. LIPITOR [Concomitant]
     Route: 065
  4. VICODIN [Concomitant]
     Indication: BONE PAIN
     Route: 065
     Dates: start: 20100315
  5. AREDIA [Concomitant]
     Route: 065
     Dates: start: 20100310
  6. AREDIA [Concomitant]
  7. DECADRON [Concomitant]
     Route: 065
     Dates: start: 20100325
  8. VELCADE [Concomitant]
     Dates: start: 20100506, end: 20100604

REACTIONS (13)
  - ANAEMIA [None]
  - BLOOD POTASSIUM DECREASED [None]
  - CARDIAC FAILURE CONGESTIVE [None]
  - COLD SWEAT [None]
  - DIZZINESS [None]
  - FATIGUE [None]
  - HYPERCALCAEMIA [None]
  - HYPOTENSION [None]
  - LACTIC ACIDOSIS [None]
  - MULTIPLE MYELOMA [None]
  - MUSCULAR WEAKNESS [None]
  - PLATELET COUNT DECREASED [None]
  - WHITE BLOOD CELL COUNT DECREASED [None]
